FAERS Safety Report 8172062-X (Version None)
Quarter: 2012Q1

REPORT INFORMATION
  Report Type: 
  Country: None (occurrence: None)
  Receive Date: 20120228
  Receipt Date: 20120221
  Transmission Date: 20120608
  Serious: Yes (Other)
  Sender: FDA-Public Use
  Company Number: MA-ABBOTT-12P-110-0905681-00

PATIENT

DRUGS (1)
  1. VALPROIC ACID [Suspect]
     Indication: PROPHYLAXIS
     Dosage: TWICE A DAY
     Route: 065
     Dates: start: 20110817, end: 20120101

REACTIONS (3)
  - CONVULSION [None]
  - DRUG LEVEL BELOW THERAPEUTIC [None]
  - MEDICATION RESIDUE [None]
